FAERS Safety Report 23505198 (Version 1)
Quarter: 2024Q1

REPORT INFORMATION
  Report Type: Spontaneous
  Country: CN (occurrence: CN)
  Receive Date: 20240209
  Receipt Date: 20240209
  Transmission Date: 20240409
  Serious: Yes (Other)
  Sender: FDA-Public Use
  Company Number: CN-ALKEM LABORATORIES LIMITED-CN-ALKEM-2023-08078

PATIENT
  Age: 70 Year
  Sex: Female

DRUGS (11)
  1. SITAGLIPTIN [Interacting]
     Active Substance: SITAGLIPTIN
     Indication: Type 2 diabetes mellitus
     Dosage: 100 MILLIGRAM, QD (ONCE A DAY)
     Route: 048
  2. ATORVASTATIN CALCIUM [Suspect]
     Active Substance: ATORVASTATIN CALCIUM
     Indication: Product used for unknown indication
     Dosage: 20 MILLIGRAM, HS
     Route: 048
     Dates: start: 20210321
  3. ATORVASTATIN CALCIUM [Suspect]
     Active Substance: ATORVASTATIN CALCIUM
     Dosage: 20 MILLIGRAM, HS
     Route: 048
     Dates: start: 20210514
  4. ASPIRIN [Suspect]
     Active Substance: ASPIRIN
     Indication: Product used for unknown indication
     Dosage: 100 MILLIGRAM, QD
     Route: 048
  5. OSIMERTINIB [Interacting]
     Active Substance: OSIMERTINIB
     Indication: Non-small cell lung cancer stage III
     Dosage: 80 MILLIGRAM, QD
     Route: 048
  6. OSIMERTINIB [Interacting]
     Active Substance: OSIMERTINIB
     Indication: Lung adenocarcinoma
     Dosage: 80 MILLIGRAM, QD (RECHALLENGE)
     Route: 048
  7. AMLODIPINE BESYLATE [Concomitant]
     Active Substance: AMLODIPINE BESYLATE
     Indication: Hypertension
     Dosage: 2.5 MILLIGRAM, QD (ONCE A DAY)
     Route: 048
  8. GLIMEPIRIDE [Concomitant]
     Active Substance: GLIMEPIRIDE
     Indication: Diabetes mellitus
     Dosage: 2 MILLIGRAM, QD (ONCE A DAY)
     Route: 048
  9. Metformin acarbose [Concomitant]
     Indication: Type 2 diabetes mellitus
     Dosage: 0.1 GRAM, TID (THREE TIMES A DAY)
     Route: 048
  10. METFORMIN [Concomitant]
     Active Substance: METFORMIN HYDROCHLORIDE
     Indication: Diabetes mellitus
     Dosage: 0.25 GRAM, TID (THREE TIMES A DAY)
     Route: 048
  11. METFORMIN [Concomitant]
     Active Substance: METFORMIN HYDROCHLORIDE
     Dosage: 0.5 GRAM, BID
     Route: 048

REACTIONS (3)
  - Thrombocytopenia [Recovered/Resolved]
  - Drug interaction [Unknown]
  - Treatment noncompliance [Unknown]
